FAERS Safety Report 7270862-1 (Version None)
Quarter: 2011Q1

REPORT INFORMATION
  Report Type: 
  Country: None (occurrence: None)
  Receive Date: 20110202
  Receipt Date: 20110128
  Transmission Date: 20110831
  Serious: Yes (Life-Threatening, Hospitalization)
  Sender: FDA-Public Use
  Company Number: US-ASTRAZENECA-2011SE05273

PATIENT
  Age: 27 Year
  Sex: Male

DRUGS (1)
  1. SYMBICORT [Suspect]
     Dosage: 160/4.5MCG TWO PUFFS BID
     Route: 055

REACTIONS (3)
  - CARDIAC ARREST [None]
  - MECHANICAL VENTILATION [None]
  - DRUG DOSE OMISSION [None]
